FAERS Safety Report 16857511 (Version 1)
Quarter: 2019Q3

REPORT INFORMATION
  Report Type: Spontaneous
  Country: US (occurrence: US)
  Receive Date: 20190926
  Receipt Date: 20190926
  Transmission Date: 20191005
  Serious: No
  Sender: FDA-Public Use
  Company Number: US-TEVA-2019-US-1111795

PATIENT

DRUGS (1)
  1. CELECOXIB TEVA [Suspect]
     Active Substance: CELECOXIB
     Indication: PAIN

REACTIONS (2)
  - Drug ineffective [Unknown]
  - Product substitution issue [Unknown]
